FAERS Safety Report 8859596 (Version 1)
Quarter: 2012Q4

REPORT INFORMATION
  Report Type: Spontaneous
  Country: US (occurrence: None)
  Receive Date: 20121022
  Receipt Date: 20121022
  Transmission Date: 20130627
  Serious: Yes (Death)
  Sender: FDA-Public Use
  Company Number: US-ZYDUS-000755

PATIENT
  Age: 64 Year
  Sex: Female

DRUGS (1)
  1. HYDROXYCHLOROQUINE [Suspect]
     Dosage: 200.00-Mg - 1.0Days  / Oral
     Route: 048

REACTIONS (11)
  - Cardiomyopathy [None]
  - Respiratory failure [None]
  - Hypoxia [None]
  - Myopathy [None]
  - Atrial fibrillation [None]
  - Sick sinus syndrome [None]
  - Platelet count decreased [None]
  - Blood creatinine increased [None]
  - Aspartate aminotransferase increased [None]
  - Alanine aminotransferase increased [None]
  - Blood creatine phosphokinase increased [None]
